FAERS Safety Report 24602231 (Version 1)
Quarter: 2024Q4

REPORT INFORMATION
  Report Type: Spontaneous
  Country: US (occurrence: US)
  Receive Date: 20241111
  Receipt Date: 20241111
  Transmission Date: 20250114
  Serious: No
  Sender: BRISTOL-MYERS SQUIBB COMPANY
  Company Number: US-BRISTOL-MYERS SQUIBB COMPANY-2024-175720

PATIENT
  Age: 54 Year
  Sex: Female

DRUGS (1)
  1. ZEPOSIA [Suspect]
     Active Substance: OZANIMOD HYDROCHLORIDE
     Indication: Breast cancer female
     Route: 048

REACTIONS (7)
  - Arthralgia [Unknown]
  - Insomnia [Unknown]
  - Hypoaesthesia [Unknown]
  - Fall [Unknown]
  - Face injury [Unknown]
  - Balance disorder [Unknown]
  - Off label use [Unknown]
